FAERS Safety Report 10219428 (Version 1)
Quarter: 2014Q2

REPORT INFORMATION
  Report Type: Spontaneous
  Country: US (occurrence: None)
  Receive Date: 20140604
  Receipt Date: 20140604
  Transmission Date: 20141212
  Serious: Yes (Disabling)
  Sender: FDA-Public Use
  Company Number: None

PATIENT
  Age: 61 Year
  Sex: Female
  Weight: 129 kg

DRUGS (1)
  1. MULTAQ [Suspect]
     Indication: ATRIAL FLUTTER
     Dosage: 1 TABLET AM AND PM TWICE DAILY BY MOUTH
     Route: 048
     Dates: start: 20131122, end: 20140116

REACTIONS (7)
  - Pain [None]
  - Nausea [None]
  - Vomiting [None]
  - Impaired gastric emptying [None]
  - Weight decreased [None]
  - Abdominal pain [None]
  - Contraindication to medical treatment [None]
